FAERS Safety Report 23060073 (Version 1)
Quarter: 2023Q4

REPORT INFORMATION
  Report Type: Spontaneous
  Country: US (occurrence: US)
  Receive Date: 20231012
  Receipt Date: 20231012
  Transmission Date: 20240110
  Serious: Yes (Other)
  Sender: FDA-Public Use
  Company Number: US-ELI_LILLY_AND_COMPANY-US202310004071

PATIENT
  Age: 58 Year
  Sex: Male

DRUGS (4)
  1. MOUNJARO [Suspect]
     Active Substance: TIRZEPATIDE
     Indication: Diabetes mellitus
     Dosage: 2.5 MG, UNKNOWN
     Route: 065
  2. MOUNJARO [Suspect]
     Active Substance: TIRZEPATIDE
     Indication: Diabetes mellitus
     Dosage: 5 MG, UNKNOWN
     Route: 065
  3. MOUNJARO [Suspect]
     Active Substance: TIRZEPATIDE
     Indication: Diabetes mellitus
     Dosage: 7.5 MG, UNKNOWN
     Route: 065
     Dates: start: 20230929
  4. OZEMPIC [Suspect]
     Active Substance: SEMAGLUTIDE
     Indication: Product used for unknown indication
     Dosage: UNK UNK, UNKNOWN
     Route: 065

REACTIONS (15)
  - Oesophageal haemorrhage [Unknown]
  - Haemorrhoids [Unknown]
  - Anxiety [Unknown]
  - Hypertension [Unknown]
  - Eye swelling [Unknown]
  - Pain [Unknown]
  - Feeling hot [Unknown]
  - Erythema [Unknown]
  - Sleep disorder due to a general medical condition [Unknown]
  - Road traffic accident [Unknown]
  - Urticaria [Not Recovered/Not Resolved]
  - Vomiting [Unknown]
  - Constipation [Recovering/Resolving]
  - Hypoglycaemia [Unknown]
  - Abdominal pain [Unknown]

NARRATIVE: CASE EVENT DATE: 20230929
